FAERS Safety Report 18922945 (Version 2)
Quarter: 2021Q1

REPORT INFORMATION
  Report Type: Spontaneous
  Country: TW (occurrence: TW)
  Receive Date: 20210222
  Receipt Date: 20210302
  Transmission Date: 20210420
  Serious: No
  Sender: FDA-Public Use
  Company Number: TW-PFIZER INC-2021172048

PATIENT
  Age: 44 Year
  Sex: Female

DRUGS (4)
  1. RAPAMUNE [Suspect]
     Active Substance: SIROLIMUS
  2. DAPTOMYCIN. [Suspect]
     Active Substance: DAPTOMYCIN
     Indication: ENTEROCOCCAL INFECTION
  3. SIMULECT [Concomitant]
     Active Substance: BASILIXIMAB
  4. TARGOCID [Concomitant]
     Active Substance: TEICOPLANIN

REACTIONS (1)
  - No adverse event [Unknown]
